FAERS Safety Report 4947267-9 (Version None)
Quarter: 2006Q1

REPORT INFORMATION
  Report Type: 
  Country: None (occurrence: None)
  Receive Date: 20060201
  Receipt Date: 20051215
  Transmission Date: 20060701
  Serious: No
  Sender: FDA-Public Use
  Company Number: 2005PV005935

PATIENT
  Age: 64 Year
  Sex: Female
  Weight: 81.1939 kg

DRUGS (11)
  1. BYETTA [Suspect]
     Indication: DIABETES MELLITUS NON-INSULIN-DEPENDENT
     Dosage: 5 MCG;BID;SC
     Route: 058
     Dates: start: 20051203
  2. ACTOS [Concomitant]
  3. AMARYL [Concomitant]
  4. ASPIRIN [Concomitant]
  5. MOBIC [Concomitant]
  6. HYDROCHLOROTHIAZIDE [Concomitant]
  7. PRAVACHOL [Concomitant]
  8. GLUCOSAMINE [Concomitant]
  9. FISH OIL [Concomitant]
  10. MULTIVITAMIN [Concomitant]
  11. CALCIUM GLUCONATE [Concomitant]

REACTIONS (2)
  - CONTUSION [None]
  - INJECTION SITE PAIN [None]
